FAERS Safety Report 12386000 (Version 1)
Quarter: 2016Q2

REPORT INFORMATION
  Report Type: Spontaneous
  Country: US (occurrence: US)
  Receive Date: 20160519
  Receipt Date: 20160519
  Transmission Date: 20160815
  Serious: No
  Sender: FDA-Public Use
  Company Number: US-ENDO PHARMACEUTICALS INC.-2015-004770

PATIENT
  Age: 62 Year
  Sex: Female
  Weight: 65.83 kg

DRUGS (9)
  1. LIDOCAINE PATCHES [Concomitant]
     Indication: BACK PAIN
  2. LIDODERM [Concomitant]
     Active Substance: LIDOCAINE
     Indication: SPINAL DISORDER
  3. MIRALAX [Concomitant]
     Active Substance: POLYETHYLENE GLYCOL 3350
     Indication: DIARRHOEA
  4. SENOKOT [Concomitant]
     Active Substance: SENNOSIDES
     Indication: FAECES HARD
  5. LIDOCAINE PATCHES [Concomitant]
     Indication: SPINAL DISORDER
  6. LORAZEPAM TABLETS 2MG [Suspect]
     Active Substance: LORAZEPAM
     Indication: PRODUCT USED FOR UNKNOWN INDICATION
     Route: 048
     Dates: start: 20151009
  7. OXYCODONE [Concomitant]
     Active Substance: OXYCODONE
     Indication: SPINAL DISORDER
  8. OXYCODONE [Concomitant]
     Active Substance: OXYCODONE
     Indication: DIARRHOEA
  9. LIDODERM [Concomitant]
     Active Substance: LIDOCAINE
     Indication: BACK PAIN

REACTIONS (7)
  - Abdominal discomfort [Not Recovered/Not Resolved]
  - Abnormal faeces [Not Recovered/Not Resolved]
  - Headache [Not Recovered/Not Resolved]
  - Melaena [Not Recovered/Not Resolved]
  - Flatulence [Not Recovered/Not Resolved]
  - Condition aggravated [Not Recovered/Not Resolved]
  - Faeces soft [Not Recovered/Not Resolved]

NARRATIVE: CASE EVENT DATE: 201510
